FAERS Safety Report 6505587-0 (Version None)
Quarter: 2009Q4

REPORT INFORMATION
  Report Type: 
  Country: None (occurrence: None)
  Receive Date: 20091218
  Receipt Date: 20091210
  Transmission Date: 20100525
  Serious: Yes (Other)
  Sender: FDA-Public Use
  Company Number: BR-PFIZER INC-2009305952

PATIENT
  Age: 28 Year
  Sex: Female
  Weight: 66 kg

DRUGS (3)
  1. DEPO-PROVERA [Suspect]
     Indication: CONTRACEPTION
     Dosage: 150 MG, EVERY 3 MONTHS
     Route: 030
     Dates: start: 20091001
  2. FERROUS SULFATE [Concomitant]
     Dosage: UNK
  3. VITAMIN B COMPLEX CAP [Concomitant]

REACTIONS (11)
  - ASTHENIA [None]
  - COLD SWEAT [None]
  - DIZZINESS [None]
  - FEELING HOT [None]
  - HEAD DISCOMFORT [None]
  - METRORRHAGIA [None]
  - MUSCULAR WEAKNESS [None]
  - NAUSEA [None]
  - PAIN IN EXTREMITY [None]
  - TREMOR [None]
  - WEIGHT DECREASED [None]
